FAERS Safety Report 5777259-1 (Version None)
Quarter: 2008Q2

REPORT INFORMATION
  Report Type: 
  Country: None (occurrence: None)
  Receive Date: 20080618
  Receipt Date: 20080609
  Transmission Date: 20081010
  Serious: Yes (Other)
  Sender: FDA-Public Use
  Company Number: US-ELI_LILLY_AND_COMPANY-US200806002160

PATIENT
  Age: 48 Year
  Sex: Female

DRUGS (9)
  1. BYETTA [Suspect]
     Dosage: UNK, UNKNOWN
     Route: 065
     Dates: start: 20070101
  2. ANTI-DIABETICS [Concomitant]
     Dosage: UNK, UNKNOWN
     Route: 065
     Dates: start: 20070526, end: 20071001
  3. TRICOR [Concomitant]
     Dosage: UNK, UNKNOWN
     Route: 065
  4. PAXIL [Concomitant]
     Dosage: UNK, UNKNOWN
     Route: 065
  5. CRESTOR [Concomitant]
     Dosage: UNK, UNKNOWN
     Route: 065
  6. GLUCOPHAGE [Concomitant]
     Dosage: UNK, UNKNOWN
     Route: 065
  7. LANTUS [Concomitant]
     Dosage: UNK, UNKNOWN
     Route: 065
  8. TORSEMIDE [Concomitant]
     Dosage: UNK, UNKNOWN
     Route: 065
  9. DIOVAN [Concomitant]
     Dosage: UNK, UNKNOWN
     Route: 065

REACTIONS (3)
  - APHTHOUS STOMATITIS [None]
  - PANCREATITIS [None]
  - RASH [None]
